FAERS Safety Report 15494121 (Version 5)
Quarter: 2021Q2

REPORT INFORMATION
  Report Type: Spontaneous
  Country: FR (occurrence: FR)
  Receive Date: 20181012
  Receipt Date: 20210429
  Transmission Date: 20210716
  Serious: Yes (Death)
  Sender: FDA-Public Use
  Company Number: FR-PFIZER INC-2018410926

PATIENT
  Age: 60 Year
  Sex: Female
  Weight: 65 kg

DRUGS (12)
  1. PANTOPRAZOLE [Suspect]
     Active Substance: PANTOPRAZOLE
     Dosage: 40 MG, QD
     Route: 048
     Dates: start: 20180818, end: 20180905
  2. VENLAFAXINE HCL [Suspect]
     Active Substance: VENLAFAXINE HYDROCHLORIDE
     Indication: ANXIETY
     Dosage: 37.5 MG, QD
     Route: 048
     Dates: start: 20180826, end: 20180905
  3. AMIODARONE [Concomitant]
     Active Substance: AMIODARONE
     Dosage: UNK
  4. TRAMADOL (CHLORHYDRATE DE) [Suspect]
     Active Substance: TRAMADOL HYDROCHLORIDE
     Indication: PAIN
     Dosage: 200 MG, QD
     Route: 048
     Dates: start: 20180828, end: 20180905
  5. BISOPROLOL FUMARATE. [Concomitant]
     Active Substance: BISOPROLOL FUMARATE
     Dosage: UNK
  6. IMIPENEM ANHYDRE [Suspect]
     Active Substance: IMIPENEM
     Indication: INFECTION
     Dosage: 1500 MG, DAILY
     Route: 042
     Dates: start: 20180831, end: 20180905
  7. ENOXAPARINE SODIQUE [Suspect]
     Active Substance: ENOXAPARIN SODIUM
     Indication: ATRIAL FIBRILLATION
     Dosage: 1 DF, 1X/DAY
     Route: 058
     Dates: start: 20180729, end: 20180815
  8. HEPARINE SODIQUE [Suspect]
     Active Substance: HEPARIN SODIUM
     Indication: ATRIAL FIBRILLATION
     Dosage: 2200 IU, QD
     Route: 042
     Dates: start: 20180818, end: 20180902
  9. CILASTATINE ANHYDRE [Suspect]
     Active Substance: CILASTATIN
     Indication: INFECTION
     Dosage: 1500 MG, DAILY
     Route: 042
     Dates: start: 20180831, end: 20180905
  10. FLUCONAZOLE. [Suspect]
     Active Substance: FLUCONAZOLE
     Indication: INFECTION
     Dosage: 400 MG, QD
     Route: 048
     Dates: start: 20180826, end: 20180902
  11. LOVENOX [Suspect]
     Active Substance: ENOXAPARIN SODIUM
     Indication: ATRIAL FIBRILLATION
     Dosage: 1 DF, DAILY (4 000 UI ANTI?XA/0,4 ML,)
     Route: 058
     Dates: start: 20180729, end: 20180815
  12. RAMIPRIL. [Concomitant]
     Active Substance: RAMIPRIL
     Dosage: UNK

REACTIONS (2)
  - Intracardiac thrombus [Fatal]
  - Heparin-induced thrombocytopenia [Fatal]

NARRATIVE: CASE EVENT DATE: 20180902
